FAERS Safety Report 7513094-1 (Version None)
Quarter: 2011Q2

REPORT INFORMATION
  Report Type: 
  Country: None (occurrence: None)
  Receive Date: 20110531
  Receipt Date: 20110527
  Transmission Date: 20111010
  Serious: Yes (Other)
  Sender: FDA-Public Use
  Company Number: US-PFIZER INC-2011077463

PATIENT
  Sex: Female
  Weight: 46 kg

DRUGS (14)
  1. EFFEXOR XR [Suspect]
     Indication: DEPRESSION
     Dosage: 150 MG, 1X/DAY
  2. VENLAFAXINE HCL [Suspect]
     Indication: DEPRESSION
  3. SEROQUEL [Concomitant]
     Indication: ANXIETY
  4. LEXAPRO [Concomitant]
     Indication: DEPRESSION
  5. LAMICTAL [Concomitant]
     Indication: ANXIETY
     Dosage: 100 MG, 2X/DAY
     Route: 048
  6. EFFEXOR XR [Concomitant]
     Dosage: 75 MG DAILY
     Route: 048
     Dates: end: 20110319
  7. EFFEXOR XR [Concomitant]
  8. VENLAFAXINE HCL [Suspect]
     Indication: ANXIETY
     Dosage: 75 MG DAILY
     Route: 048
     Dates: start: 20110320
  9. SEROQUEL [Concomitant]
     Indication: SLEEP DISORDER
     Dosage: 300 MG DAILY
     Route: 048
  10. EFFEXOR XR [Suspect]
     Indication: ANXIETY
     Dosage: 75 MG, 1X/DAY
  11. KLONOPIN [Concomitant]
     Indication: ANXIETY
     Dosage: 2 MG DAILY
     Route: 048
  12. LEXAPRO [Concomitant]
     Indication: ANXIETY
     Dosage: 20 MG DAILY
     Route: 048
  13. LAMICTAL [Concomitant]
     Indication: DEPRESSION
  14. SEROQUEL [Concomitant]
     Indication: DEPRESSION

REACTIONS (2)
  - DEPRESSION [None]
  - ANXIETY [None]
